FAERS Safety Report 7781546-5 (Version None)
Quarter: 2011Q3

REPORT INFORMATION
  Report Type: 
  Country: None (occurrence: None)
  Receive Date: 20110927
  Receipt Date: 20110914
  Transmission Date: 20111222
  Serious: Yes (Other)
  Sender: FDA-Public Use
  Company Number: JP-PFIZER INC-2011204535

PATIENT
  Age: 73 Year
  Sex: Male
  Weight: 60 kg

DRUGS (7)
  1. CELECOXIB [Suspect]
     Indication: ANALGESIC THERAPY
     Dosage: 200 MG, DAILY
     Route: 048
     Dates: start: 20110715, end: 20110724
  2. MUCOSTA [Concomitant]
     Dosage: UNK
     Route: 048
     Dates: start: 20110715, end: 20110724
  3. ADEFURONIC [Concomitant]
     Indication: ANALGESIC THERAPY
  4. AMLODIPINE [Concomitant]
     Indication: HYPERTENSION
  5. LIDOCAINE HYDROCHLORIDE [Concomitant]
     Indication: NERVE BLOCK
  6. ALLOPURINOL [Concomitant]
     Indication: GOUT
  7. HICORT [Concomitant]

REACTIONS (6)
  - DECREASED APPETITE [None]
  - ECZEMA [None]
  - PYREXIA [None]
  - GAIT DISTURBANCE [None]
  - URTICARIA [None]
  - DYSGEUSIA [None]
